FAERS Safety Report 8125306-4 (Version None)
Quarter: 2012Q1

REPORT INFORMATION
  Report Type: 
  Country: None (occurrence: None)
  Receive Date: 20120209
  Receipt Date: 20120202
  Transmission Date: 20120608
  Serious: Yes (Death, Hospitalization)
  Sender: FDA-Public Use
  Company Number: US-GLAXOSMITHKLINE-A0886887A

PATIENT
  Age: 57 Year
  Sex: Male
  Weight: 95 kg

DRUGS (1)
  1. AVANDIA [Suspect]
     Indication: DIABETES MELLITUS
     Dosage: 8MG PER DAY
     Route: 048

REACTIONS (6)
  - DEATH [None]
  - CARDIAC FAILURE CONGESTIVE [None]
  - THROMBOSIS [None]
  - CHEST PAIN [None]
  - TRANSIENT ISCHAEMIC ATTACK [None]
  - ATRIAL FLUTTER [None]
